FAERS Safety Report 20573622 (Version 1)
Quarter: 2022Q1

REPORT INFORMATION
  Report Type: Spontaneous
  Country: DE (occurrence: DE)
  Receive Date: 20220309
  Receipt Date: 20220309
  Transmission Date: 20220423
  Serious: Yes (Other)
  Sender: FDA-Public Use
  Company Number: None

PATIENT
  Age: 29 Year
  Sex: Female
  Weight: 86 kg

DRUGS (4)
  1. DROSPIRENONE [Suspect]
     Active Substance: DROSPIRENONE
     Indication: Heavy menstrual bleeding
     Dosage: 1X T?GLICH
     Route: 048
     Dates: start: 20211001, end: 20211119
  2. DROSPIRENONE [Suspect]
     Active Substance: DROSPIRENONE
     Indication: Oral contraception
  3. DROSPIRENONE [Suspect]
     Active Substance: DROSPIRENONE
     Indication: Heavy menstrual bleeding
  4. DROSPIRENONE [Suspect]
     Active Substance: DROSPIRENONE
     Indication: Premenstrual syndrome

REACTIONS (20)
  - Intracranial pressure increased [Unknown]
  - Pain [Not Recovered/Not Resolved]
  - Abdominal pain lower [Not Recovered/Not Resolved]
  - Abdominal pain lower [Not Recovered/Not Resolved]
  - Depressed mood [Recovered/Resolved]
  - Loss of personal independence in daily activities [Recovered/Resolved]
  - Vomiting [Not Recovered/Not Resolved]
  - Emotional disorder [Recovered/Resolved]
  - Cyst [Not Recovered/Not Resolved]
  - Uterine enlargement [Not Recovered/Not Resolved]
  - Decreased appetite [Recovered/Resolved]
  - Fatigue [Recovered/Resolved]
  - Anaemia [Not Recovered/Not Resolved]
  - Crying [Recovered/Resolved]
  - Irritability [Recovered/Resolved]
  - Intermenstrual bleeding [Not Recovered/Not Resolved]
  - Headache [Not Recovered/Not Resolved]
  - Disturbance in attention [Recovered/Resolved]
  - Fatigue [Recovered/Resolved]
  - Memory impairment [Recovered/Resolved]

NARRATIVE: CASE EVENT DATE: 20210101
